APPROVED DRUG PRODUCT: PURINETHOL
Active Ingredient: MERCAPTOPURINE
Strength: 50MG **Federal Register determination that product was not discontinued or withdrawn for safety or effectiveness reasons**
Dosage Form/Route: TABLET;ORAL
Application: N009053 | Product #002 | TE Code: AB
Applicant: STASON PHARMACEUTICALS INC
Approved: Approved Prior to Jan 1, 1982 | RLD: Yes | RS: No | Type: RX